FAERS Safety Report 5325128-3 (Version None)
Quarter: 2007Q2

REPORT INFORMATION
  Report Type: 
  Country: None (occurrence: None)
  Receive Date: 20070511
  Receipt Date: 20070511
  Transmission Date: 20071010
  Serious: Yes (Death)
  Sender: FDA-Public Use
  Company Number: None

PATIENT
  Sex: Female
  Weight: 71.07 kg

DRUGS (2)
  1. CARBOPLATIN [Suspect]
     Indication: OVARIAN CANCER
     Dosage: 559 MG IV BOLUS
     Route: 042
     Dates: start: 20020101, end: 20020101
  2. CARBOPLATIN [Suspect]
     Indication: OVARIAN CANCER
     Dosage: 559 MG IV BOLUS
     Route: 042
     Dates: start: 20070411, end: 20070503

REACTIONS (2)
  - ANAPHYLACTIC REACTION [None]
  - CARDIO-RESPIRATORY ARREST [None]
